FAERS Safety Report 7787249-5 (Version None)
Quarter: 2011Q3

REPORT INFORMATION
  Report Type: 
  Country: None (occurrence: None)
  Receive Date: 20110929
  Receipt Date: 20110922
  Transmission Date: 20111222
  Serious: Yes (Hospitalization, Other)
  Sender: FDA-Public Use
  Company Number: US-ABBOTT-11P-163-0858105-00

PATIENT
  Age: 59 Year
  Sex: Male

DRUGS (8)
  1. VICODIN [Concomitant]
     Indication: PAIN
  2. HUMIRA [Suspect]
     Dosage: INTERRUPTED
  3. DICLOFENAC [Concomitant]
     Indication: PAIN
     Dosage: USUALLY ONCE A DAY
  4. METHOCARBOMOL [Concomitant]
     Indication: MUSCLE RELAXANT THERAPY
  5. HUMIRA [Suspect]
     Indication: ANKYLOSING SPONDYLITIS
     Dates: start: 20090101
  6. METHOCARBOMOL [Concomitant]
     Indication: PROPHYLAXIS
  7. BEN GAY [Concomitant]
     Indication: PRODUCT USED FOR UNKNOWN INDICATION
  8. METHOCARBOMOL [Concomitant]
     Indication: MUSCLE SPASMS
     Dosage: 2-3 TIMES A WEEK

REACTIONS (10)
  - TINEA PEDIS [None]
  - NAIL DISCOLOURATION [None]
  - PHARYNGITIS [None]
  - SCIATICA [None]
  - ONYCHOGRYPHOSIS [None]
  - COLON ADENOMA [None]
  - NEUROPATHY PERIPHERAL [None]
  - SKIN MASS [None]
  - SINUS CONGESTION [None]
  - FUNGAL SKIN INFECTION [None]
